FAERS Safety Report 21444493 (Version 2)
Quarter: 2022Q4

REPORT INFORMATION
  Report Type: Spontaneous
  Country: HR (occurrence: HR)
  Receive Date: 20221012
  Receipt Date: 20221014
  Transmission Date: 20230113
  Serious: Yes (Other)
  Sender: FDA-Public Use
  Company Number: HR-SAMSUNG BIOEPIS-SB-2022-24852

PATIENT
  Age: 70 Year
  Sex: Male

DRUGS (1)
  1. REMICADE [Suspect]
     Active Substance: INFLIXIMAB
     Indication: Rheumatoid arthritis
     Dosage: UNKNOWN
     Route: 041
     Dates: start: 2014

REACTIONS (1)
  - Hepatic echinococciasis [Unknown]
